FAERS Safety Report 17469604 (Version 3)
Quarter: 2020Q4

REPORT INFORMATION
  Report Type: Spontaneous
  Country: ES (occurrence: ES)
  Receive Date: 20200227
  Receipt Date: 20201125
  Transmission Date: 20210113
  Serious: Yes (Hospitalization, Other)
  Sender: FDA-Public Use
  Company Number: ES-AMERICAN REGENT INC-2020000508

PATIENT
  Age: 54 Year
  Sex: Female
  Weight: 70 kg

DRUGS (4)
  1. VENOFER [Suspect]
     Active Substance: IRON SUCROSE
     Indication: IRON DEFICIENCY ANAEMIA
     Dosage: 200 MILLIGRAM
     Route: 042
     Dates: start: 201403
  2. FERINJECT [Suspect]
     Active Substance: FERRIC CARBOXYMALTOSE
     Indication: IRON DEFICIENCY ANAEMIA
     Dosage: 1 G WEEKLY FOR TWO WEEKS AND SUBSEQUENTLY 500 MG EACH WEEK (1 GM, 1 IN 1 WEEK)
     Route: 042
     Dates: start: 201503
  3. IRON [Suspect]
     Active Substance: IRON
     Indication: IRON DEFICIENCY ANAEMIA
     Dosage: UNK
     Route: 042
     Dates: start: 2013, end: 2013
  4. VENOFER [Suspect]
     Active Substance: IRON SUCROSE
     Indication: UTERINE LEIOMYOMA

REACTIONS (11)
  - Osteoarthritis [Unknown]
  - Metastases to bone [Unknown]
  - Hypophosphataemic osteomalacia [Recovered/Resolved]
  - Diffuse idiopathic skeletal hyperostosis [Unknown]
  - Pain [Not Recovered/Not Resolved]
  - Axillary mass [Unknown]
  - Poor quality sleep [Not Recovered/Not Resolved]
  - Tenosynovitis stenosans [Unknown]
  - Osteopenia [Unknown]
  - Fatigue [Not Recovered/Not Resolved]
  - Constipation [Not Recovered/Not Resolved]

NARRATIVE: CASE EVENT DATE: 201608
